FAERS Safety Report 4988335-5 (Version None)
Quarter: 2006Q2

REPORT INFORMATION
  Report Type: 
  Country: None (occurrence: None)
  Receive Date: 20060425
  Receipt Date: 20060323
  Transmission Date: 20061013
  Serious: Yes (Life-Threatening, Disabling)
  Sender: FDA-Public Use
  Company Number: S05-BEL-04979-01

PATIENT
  Age: 60 Year
  Sex: Female
  Weight: 61 kg

DRUGS (6)
  1. SIRAPLEXA (ESCITALOPRAM) [Suspect]
     Indication: CEREBROVASCULAR ACCIDENT
     Dosage: 5 MG QD PO
     Route: 048
     Dates: start: 20050920, end: 20050920
  2. SIRAPLEXA (ESCITALOPRAM) [Suspect]
     Indication: DEPRESSION
     Dosage: 5 MG QD PO
     Route: 048
     Dates: start: 20050920, end: 20050920
  3. ENOXAPARIN SODIUM [Concomitant]
  4. ROSUVASTATINE (ROSUVASTATIN) [Concomitant]
  5. PANTOPRAZOLE [Concomitant]
  6. ENOXAPARIN SODIUM [Concomitant]

REACTIONS (6)
  - BRADYCARDIA [None]
  - CEREBRAL INFARCTION [None]
  - CONDITION AGGRAVATED [None]
  - HYPERTENSION [None]
  - RESPIRATORY ARREST [None]
  - SYNCOPE [None]
